FAERS Safety Report 21965504 (Version 3)
Quarter: 2023Q2

REPORT INFORMATION
  Report Type: Report from Study
  Country: FR (occurrence: FR)
  Receive Date: 20230208
  Receipt Date: 20230413
  Transmission Date: 20230721
  Serious: Yes (Hospitalization)
  Sender: FDA-Public Use
  Company Number: FR-SA-SAC20230122000073

PATIENT
  Age: 62 Year
  Sex: Female
  Weight: 52 kg

DRUGS (8)
  1. ISATUXIMAB [Suspect]
     Active Substance: ISATUXIMAB
     Indication: Minimal residual disease
     Dosage: 10 MG/KG
     Route: 042
     Dates: start: 20221221, end: 20221221
  2. ISATUXIMAB [Suspect]
     Active Substance: ISATUXIMAB
     Dosage: 550 MG/KG
     Route: 042
     Dates: start: 20230111, end: 20230111
  3. CARFILZOMIB [Suspect]
     Active Substance: CARFILZOMIB
     Indication: Minimal residual disease
     Dosage: 32 MG
     Route: 042
     Dates: start: 20221221, end: 20221221
  4. CARFILZOMIB [Suspect]
     Active Substance: CARFILZOMIB
     Dosage: 90 MG
     Route: 042
     Dates: start: 20221228, end: 20221228
  5. LENALIDOMIDE [Suspect]
     Active Substance: LENALIDOMIDE
     Indication: Minimal residual disease
     Dosage: 25 MG
     Route: 048
     Dates: start: 20221221, end: 20221221
  6. LENALIDOMIDE [Suspect]
     Active Substance: LENALIDOMIDE
     Dosage: 25 MG
     Route: 048
     Dates: start: 20230104, end: 20230104
  7. DEXAMETHASONE [Suspect]
     Active Substance: DEXAMETHASONE
     Indication: Minimal residual disease
     Dosage: 40 MG
     Route: 048
     Dates: start: 20221221, end: 20221221
  8. DEXAMETHASONE [Suspect]
     Active Substance: DEXAMETHASONE
     Dosage: 40 MG
     Route: 048
     Dates: start: 20230111, end: 20230111

REACTIONS (1)
  - General physical health deterioration [Recovered/Resolved]

NARRATIVE: CASE EVENT DATE: 20230113
